FAERS Safety Report 8620129-1 (Version None)
Quarter: 2012Q3

REPORT INFORMATION
  Report Type: 
  Country: None (occurrence: None)
  Receive Date: 20120824
  Receipt Date: 20120817
  Transmission Date: 20120928
  Serious: Yes (Hospitalization, Other)
  Sender: FDA-Public Use
  Company Number: KR-JNJFOC-20120809556

PATIENT
  Sex: Female

DRUGS (8)
  1. PROTOPIC [Concomitant]
     Indication: PSORIASIS
     Dates: start: 20050101
  2. USTEKINUMAB [Suspect]
     Indication: PSORIASIS
     Route: 058
     Dates: start: 20120109
  3. METHOTREXATE [Concomitant]
     Indication: PSORIASIS
     Dates: start: 20111129, end: 20120213
  4. USTEKINUMAB [Suspect]
     Route: 058
     Dates: start: 20120430
  5. DAIVOBET [Concomitant]
     Indication: PSORIASIS
     Dates: start: 20050101
  6. YUHANZID [Concomitant]
     Indication: LATENT TUBERCULOSIS
     Dates: start: 20120109
  7. PYRIDOXINE HCL [Concomitant]
     Indication: LATENT TUBERCULOSIS
     Dates: start: 20120109
  8. FOLIC ACID [Concomitant]
     Indication: PSORIASIS
     Dates: start: 20111004, end: 20120120

REACTIONS (1)
  - COLON CANCER [None]
